FAERS Safety Report 15230153 (Version 1)
Quarter: 2018Q3

REPORT INFORMATION
  Report Type: Spontaneous
  Country: US (occurrence: US)
  Receive Date: 20180802
  Receipt Date: 20180802
  Transmission Date: 20181010
  Serious: Yes (Other)
  Sender: FDA-Public Use
  Company Number: US-ACCORD-066174

PATIENT
  Sex: Female

DRUGS (22)
  1. NEOSAR [Suspect]
     Active Substance: CYCLOPHOSPHAMIDE
     Indication: BREAST CANCER
     Dosage: STRENGTH: 100 MG
     Dates: start: 20130725
  2. ATORVASTATIN [Concomitant]
     Active Substance: ATORVASTATIN
     Dosage: STRENGTH: 80 MG?AT BEDTIME
     Route: 048
  3. ZOFRAN [Concomitant]
     Active Substance: ONDANSETRON HYDROCHLORIDE
     Dosage: STRENGTH: 8 MG, AS NEEDED
     Route: 048
  4. PANTOPRAZOLE [Concomitant]
     Active Substance: PANTOPRAZOLE
     Dosage: STRENGTH: 40 MG
     Route: 048
  5. CLINDAMYCIN. [Concomitant]
     Active Substance: CLINDAMYCIN
     Dosage: STRENGTH: 600 MG
     Dates: start: 20130725
  6. PROCHLORPERAZINE. [Concomitant]
     Active Substance: PROCHLORPERAZINE
     Dosage: STRENGTH: 10 MG, EVERY SIX HOURS AS NEEDED
     Route: 048
  7. ENOXAPARIN [Concomitant]
     Active Substance: ENOXAPARIN
     Dosage: STRENGTH: 130 MG
     Route: 058
  8. IPRATROPIUM [Concomitant]
     Active Substance: IPRATROPIUM
     Dosage: STRENGTH: 0.5 MG NEB SOLUTION?4 X DAILY
     Route: 055
  9. DOCETAXEL ACCORD [Suspect]
     Active Substance: DOCETAXEL
     Indication: BREAST CANCER
     Dosage: DOSE: 44?179 MG
     Route: 042
     Dates: start: 20130725, end: 20140917
  10. FENTANYL. [Concomitant]
     Active Substance: FENTANYL
     Dosage: STRENGTH: 100 MCG
     Dates: start: 20130725
  11. CYTOXAN [Concomitant]
     Active Substance: CYCLOPHOSPHAMIDE
     Dosage: DOSE: 600 MG/M^2: 1.434 MG
     Route: 042
     Dates: start: 20130725
  12. FUROSEMIDE. [Concomitant]
     Active Substance: FUROSEMIDE
     Dosage: STRENGTH: 40 MG
     Route: 048
     Dates: start: 20130619, end: 20131120
  13. LIDOCAINE. [Concomitant]
     Active Substance: LIDOCAINE
     Dosage: STRE: 1% 20ML
     Dates: start: 20130725
  14. MIDAZOLAM [Concomitant]
     Active Substance: MIDAZOLAM HYDROCHLORIDE
     Dosage: STRENGTH: 2 MG
     Dates: start: 20130725
  15. WARFARIN [Concomitant]
     Active Substance: WARFARIN
     Dosage: STRENGTH: 5 MG
     Route: 048
  16. HERCEPTIN [Suspect]
     Active Substance: TRASTUZUMAB
     Indication: BREAST CANCER
  17. DECADRON [Concomitant]
     Active Substance: DEXAMETHASONE
     Dosage: STRENGTH: 4 MG; 12 MG
     Route: 048
     Dates: start: 20130725
  18. ALOXI [Concomitant]
     Active Substance: PALONOSETRON HYDROCHLORIDE
     Dosage: STRENGTH: 25 MCG
     Route: 042
     Dates: start: 20130725
  19. SODIUM CHLORIDE. [Concomitant]
     Active Substance: SODIUM CHLORIDE
     Dosage: STRENGTH: 0.9% 1000 ML
     Route: 042
     Dates: start: 20130725
  20. NORCO [Concomitant]
     Active Substance: ACETAMINOPHEN\HYDROCODONE BITARTRATE
     Dosage: STRENGTH: 5/325 MG?AS NEEDED
     Route: 048
     Dates: start: 20130618, end: 20130802
  21. SODIUM BICARBONATE. [Concomitant]
     Active Substance: SODIUM BICARBONATE
     Dosage: STRENGTH: 8.40 % 50MEQ
     Dates: start: 20130725
  22. DILTIAZEM. [Concomitant]
     Active Substance: DILTIAZEM
     Dosage: STRENGTH: 125 MG IN 125 MG IN DEXTROSE 5% 125 ML INFUSION
     Route: 042

REACTIONS (1)
  - Alopecia [Not Recovered/Not Resolved]
